FAERS Safety Report 18502283 (Version 1)
Quarter: 2020Q4

REPORT INFORMATION
  Report Type: Other
  Country: US (occurrence: US)
  Receive Date: 20201113
  Receipt Date: 20201113
  Transmission Date: 20210114
  Serious: No
  Sender: FDA-Public Use
  Company Number: US-LEADIANT BIOSCIENCES INC-2020STPI000147

PATIENT
  Age: 28 Year
  Sex: Female

DRUGS (10)
  1. MAG OXIDE [Concomitant]
     Active Substance: MAGNESIUM OXIDE
  2. PROCYSBI [Concomitant]
     Active Substance: CYSTEAMINE BITARTRATE
  3. LEVOTHYROXINE. [Concomitant]
     Active Substance: LEVOTHYROXINE
  4. FAMOTIDINE. [Concomitant]
     Active Substance: FAMOTIDINE
  5. AZATHIOPRINE. [Concomitant]
     Active Substance: AZATHIOPRINE
  6. OMEPRAZOLE. [Concomitant]
     Active Substance: OMEPRAZOLE
  7. CYSTARAN [Suspect]
     Active Substance: CYSTEAMINE HYDROCHLORIDE
     Indication: CYSTINOSIS
     Dosage: 1 DROP INTO BOTH EYES, 5 TO 8 TIMES EVERY DAY
     Route: 047
     Dates: start: 20150630
  8. TACROLIMUS. [Concomitant]
     Active Substance: TACROLIMUS
  9. TYLENOL [Concomitant]
     Active Substance: ACETAMINOPHEN
  10. METOPROLOL. [Concomitant]
     Active Substance: METOPROLOL

REACTIONS (1)
  - Headache [Unknown]

NARRATIVE: CASE EVENT DATE: 20181227
